FAERS Safety Report 8421318 (Version 5)
Quarter: 2013Q1

REPORT INFORMATION
  Report Type: Spontaneous
  Country: US (occurrence: US)
  Receive Date: 20120222
  Receipt Date: 20130313
  Transmission Date: 20140127
  Serious: Yes (Hospitalization, Congenital Anomaly, Other)
  Sender: FDA-Public Use
  Company Number: US-PFIZER INC-2012003375

PATIENT
  Sex: Female

DRUGS (8)
  1. ZOLOFT [Suspect]
     Indication: ANXIETY DISORDER
     Dosage: 50 MG, 1X/DAY
     Route: 064
     Dates: start: 20010601
  2. ZOLOFT [Suspect]
     Dosage: HALF PILL PER DAY
     Route: 064
     Dates: start: 20011030
  3. ZOLOFT [Suspect]
     Dosage: UNK
     Route: 064
     Dates: start: 20020301
  4. ZOLOFT [Suspect]
     Dosage: 100 MG, UNK
     Route: 064
     Dates: start: 20020528
  5. ZOLOFT [Suspect]
     Dosage: ^50 UNKNOWN UNITS^
     Route: 064
     Dates: start: 20020918
  6. ZOLOFT [Suspect]
     Dosage: 50 MG, UNK
     Route: 064
     Dates: start: 20021001
  7. ZOLOFT [Suspect]
     Dosage: 50 MG, UNK
     Route: 064
     Dates: start: 20030108
  8. PRENATAL VITAMINS [Concomitant]
     Dosage: UNK
     Route: 064
     Dates: start: 20020820

REACTIONS (9)
  - Maternal exposure timing unspecified [Unknown]
  - Pulmonary artery atresia [Unknown]
  - Ventricular septal defect [Unknown]
  - Choledochal cyst [Unknown]
  - Neonatal respiratory distress syndrome [Unknown]
  - Cyanosis neonatal [Unknown]
  - Tricuspid valve incompetence [Unknown]
  - Pulmonary valve stenosis [Unknown]
  - Cardiomegaly [Unknown]
